FAERS Safety Report 17013848 (Version 1)
Quarter: 2019Q4

REPORT INFORMATION
  Report Type: Spontaneous
  Country: NL (occurrence: NL)
  Receive Date: 20191111
  Receipt Date: 20191111
  Transmission Date: 20200122
  Serious: Yes (Other)
  Sender: FDA-Public Use
  Company Number: NL-AUROBINDO-AUR-APL-2019-070255

PATIENT
  Age: 7 Year
  Sex: Male

DRUGS (17)
  1. CILASTATIN;IMIPENEM [Concomitant]
     Active Substance: CILASTATIN SODIUM\IMIPENEM
     Indication: MYCOBACTERIUM ABSCESSUS INFECTION
  2. CLOFAZIMINE [Concomitant]
     Active Substance: CLOFAZIMINE
     Indication: MYCOBACTERIUM ABSCESSUS INFECTION
  3. TIGECYCLINE. [Concomitant]
     Active Substance: TIGECYCLINE
     Indication: MYCOBACTERIUM ABSCESSUS INFECTION
     Dosage: 2.4 MILLIGRAM/KILOGRAM, ONCE A DAY (IN 2 DOSES, DILUTION OF POWDER FORMULATIONS)
     Route: 042
  4. CILASTATIN;IMIPENEM [Concomitant]
     Active Substance: CILASTATIN SODIUM\IMIPENEM
     Indication: MASTOIDITIS
     Dosage: 60 MILLIGRAM/KILOGRAM, ONCE A DAY (60/60 MG/KG/DAY IN 2-4 DOSES, DILUTION OF POWDER FORMULATIONS)
     Route: 042
  5. AZITHROMYCIN ANHYDROUS. [Concomitant]
     Active Substance: AZITHROMYCIN ANHYDROUS
     Indication: MYCOBACTERIUM ABSCESSUS INFECTION
  6. TIGECYCLINE. [Concomitant]
     Active Substance: TIGECYCLINE
     Indication: MYCOBACTERIUM ABSCESSUS INFECTION
     Dosage: 3 GTT DROPS, 3 TIMES A DAY (THREE DROPS THREE TIMES DAILY)
     Route: 061
  7. CILASTATIN;IMIPENEM [Concomitant]
     Active Substance: CILASTATIN SODIUM\IMIPENEM
     Indication: MYCOBACTERIUM ABSCESSUS INFECTION
  8. SODIUM CHLORIDE 0.9% [Concomitant]
     Active Substance: SODIUM CHLORIDE
     Indication: PRODUCT USED FOR UNKNOWN INDICATION
     Dosage: UNK
     Route: 065
  9. CLOFAZIMINE [Concomitant]
     Active Substance: CLOFAZIMINE
     Indication: MASTOIDITIS
     Dosage: UNK, ONCE A DAY
     Route: 048
  10. GRANISETRON [Concomitant]
     Active Substance: GRANISETRON
     Indication: NAUSEA
  11. DEXAMETHASON [Suspect]
     Active Substance: DEXAMETHASONE
     Indication: VOMITING
     Dosage: UNK
     Route: 065
  12. TIGECYCLINE. [Concomitant]
     Active Substance: TIGECYCLINE
     Indication: MASTOIDITIS
  13. GRANISETRON [Concomitant]
     Active Substance: GRANISETRON
     Indication: VOMITING
     Dosage: UNK
     Route: 065
  14. DEXAMETHASON [Suspect]
     Active Substance: DEXAMETHASONE
     Indication: NAUSEA
  15. TIGECYCLINE. [Concomitant]
     Active Substance: TIGECYCLINE
     Indication: MASTOIDITIS
  16. CILASTATIN;IMIPENEM [Concomitant]
     Active Substance: CILASTATIN SODIUM\IMIPENEM
     Indication: MASTOIDITIS
     Dosage: 3 GTT DROPS, 3 TIMES A DAY (THREE DROPS THREE TIMES DAILY)
     Route: 061
  17. AZITHROMYCIN ANHYDROUS. [Concomitant]
     Active Substance: AZITHROMYCIN ANHYDROUS
     Indication: MASTOIDITIS
     Dosage: 10 MILLIGRAM/KILOGRAM, ONCE A DAY
     Route: 048

REACTIONS (2)
  - Glucocorticoid deficiency [Recovered/Resolved]
  - Weight increased [Recovered/Resolved]
